FAERS Safety Report 4301158-5 (Version None)
Quarter: 2004Q1

REPORT INFORMATION
  Report Type: 
  Country: None (occurrence: None)
  Receive Date: 20040218
  Receipt Date: 20031029
  Transmission Date: 20041129
  Serious: No
  Sender: FDA-Public Use
  Company Number: 2003-10-3321

PATIENT
  Age: 55 Year
  Sex: Female

DRUGS (1)
  1. PEG-INTRON [Suspect]
     Indication: HEPATITIS C
     Dosage: UNKNOWN SUBCUTANEOUS
     Route: 058
     Dates: start: 20030701

REACTIONS (2)
  - PRURITUS [None]
  - RASH [None]
